FAERS Safety Report 12935744 (Version 2)
Quarter: 2017Q1

REPORT INFORMATION
  Report Type: Spontaneous
  Country: TN (occurrence: TN)
  Receive Date: 20161114
  Receipt Date: 20170121
  Transmission Date: 20170428
  Serious: Yes (Life-Threatening, Other)
  Sender: FDA-Public Use
  Company Number: TN-ACCORD-045567

PATIENT
  Age: 69 Year
  Sex: Male

DRUGS (1)
  1. METHOTREXATE. [Suspect]
     Active Substance: METHOTREXATE
     Indication: PSORIASIS
     Dates: start: 2008, end: 2013

REACTIONS (2)
  - Mycosis fungoides [Unknown]
  - Chronic lymphocytic leukaemia [Unknown]
